FAERS Safety Report 8320617-1 (Version None)
Quarter: 2012Q1

REPORT INFORMATION
  Report Type: 
  Country: None (occurrence: None)
  Receive Date: 20120315
  Receipt Date: 20110201
  Transmission Date: 20120608
  Serious: No
  Sender: FDA-Public Use
  Company Number: PHHY2011US08590

PATIENT
  Age: 34 Year
  Sex: Male

DRUGS (2)
  1. ANTIDEPRESSANTS [Concomitant]
  2. GILENYA [Suspect]
     Indication: RELAPSING-REMITTING MULTIPLE SCLEROSIS
     Dosage: 0.5 MG, QD, ORAL
     Route: 048
     Dates: start: 20110125

REACTIONS (3)
  - FATIGUE [None]
  - HEADACHE [None]
  - DIARRHOEA [None]
